FAERS Safety Report 23234959 (Version 1)
Quarter: 2023Q4

REPORT INFORMATION
  Report Type: Spontaneous
  Country: BG (occurrence: None)
  Receive Date: 20231128
  Receipt Date: 20231128
  Transmission Date: 20240110
  Serious: Yes (Hospitalization)
  Sender: FDA-Public Use
  Company Number: 2023A266981

PATIENT

DRUGS (8)
  1. DAPAGLIFLOZIN [Suspect]
     Active Substance: DAPAGLIFLOZIN
     Indication: Cardiac failure
     Route: 048
     Dates: start: 20211201, end: 20231120
  2. AMIODARONE [Concomitant]
     Active Substance: AMIODARONE
  3. APIXABAN [Concomitant]
     Active Substance: APIXABAN
  4. TORSEMIDE [Concomitant]
     Active Substance: TORSEMIDE
  5. SPIRONOLACTONE [Concomitant]
     Active Substance: SPIRONOLACTONE
  6. TRIMETAZIDINE [Concomitant]
     Active Substance: TRIMETAZIDINE
  7. ROSUVASTATIN [Concomitant]
     Active Substance: ROSUVASTATIN
  8. TAMSULOSIN HYDROCHLORIDE [Concomitant]
     Active Substance: TAMSULOSIN HYDROCHLORIDE

REACTIONS (5)
  - Cardiac failure congestive [Recovering/Resolving]
  - General physical health deterioration [Recovering/Resolving]
  - Chronic obstructive pulmonary disease [Recovered/Resolved]
  - Superinfection [Recovered/Resolved]
  - Iron deficiency anaemia [Recovered/Resolved]

NARRATIVE: CASE EVENT DATE: 20220201
